FAERS Safety Report 7291930-4 (Version None)
Quarter: 2011Q1

REPORT INFORMATION
  Report Type: 
  Country: None (occurrence: None)
  Receive Date: 20110214
  Receipt Date: 20110210
  Transmission Date: 20110831
  Serious: Yes (Hospitalization)
  Sender: FDA-Public Use
  Company Number: CA-ABBOTT-11P-028-0703174-00

PATIENT
  Sex: Male
  Weight: 71.732 kg

DRUGS (12)
  1. CYMRATICA [Concomitant]
     Indication: PAIN
     Route: 048
  2. METHOTREXATE [Concomitant]
     Indication: ARTHRITIS
     Route: 058
  3. APC IRON [Concomitant]
     Indication: PAIN
  4. APOFOLIC [Concomitant]
     Indication: PAIN
     Route: 048
  5. PLAQUENIL [Concomitant]
     Indication: PAIN
     Route: 048
  6. TRAMADOL HCL [Concomitant]
     Indication: PAIN
     Route: 048
  7. APO DICLO RAPIDE [Concomitant]
     Indication: PAIN
     Route: 048
  8. HUMIRA [Suspect]
     Indication: RHEUMATOID ARTHRITIS
     Route: 058
     Dates: start: 20101221
  9. ALTONEL [Concomitant]
     Indication: PAIN
     Route: 048
  10. CALCITE D [Concomitant]
     Indication: PAIN
     Route: 048
  11. TRAMADOL HYDROCHLORIDE/ACETAMINOPHEN [Concomitant]
     Indication: PAIN
     Route: 048
  12. EURO-D [Concomitant]
     Indication: PAIN

REACTIONS (6)
  - LOSS OF CONSCIOUSNESS [None]
  - HEADACHE [None]
  - DIZZINESS [None]
  - ERYTHEMA [None]
  - FACE OEDEMA [None]
  - HYPOTENSION [None]
